FAERS Safety Report 8857902 (Version 1)
Quarter: 2012Q4

REPORT INFORMATION
  Report Type: 
  Country: US (occurrence: US)
  Receive Date: 20121024
  Receipt Date: 20121024
  Transmission Date: 20130627
  Serious: No
  Sender: FDA-Public Use
  Company Number: US-AMGEN-USASP2012002656

PATIENT
  Age: 47 Year
  Sex: Female

DRUGS (12)
  1. ENBREL [Suspect]
     Indication: PRODUCT USED FOR UNKNOWN INDICATION
     Dosage: 50 mg, qwk
     Route: 058
  2. AMBIEN [Concomitant]
     Dosage: 10 mg, UNK
  3. LEVAQUIN [Concomitant]
     Dosage: 500 mg, UNK
  4. ZOLOFT [Concomitant]
     Dosage: 50 mg, UNK
  5. METHOTREXATE [Concomitant]
     Dosage: 2.5 mg, UNK
  6. LANTUS [Concomitant]
     Dosage: 100 ml, UNK
  7. LISINOPRIL [Concomitant]
     Dosage: 2.5 mg, UNK
  8. GLYBURIDE [Concomitant]
     Dosage: 2.5 mg, UNK
  9. ADVAIR [Concomitant]
     Dosage: UNK
  10. FLEXERIL                           /00428402/ [Concomitant]
     Dosage: 5 mg, UNK
  11. FOLIC ACID [Concomitant]
  12. TRAMADOL [Concomitant]
     Dosage: 100 mg, UNK

REACTIONS (1)
  - Bronchitis [Unknown]
